FAERS Safety Report 4743842-5 (Version None)
Quarter: 2005Q3

REPORT INFORMATION
  Report Type: 
  Country: None (occurrence: None)
  Receive Date: 20050809
  Receipt Date: 20050728
  Transmission Date: 20060218
  Serious: Yes (Hospitalization)
  Sender: FDA-Public Use
  Company Number: 2005108427

PATIENT
  Age: 60 Year
  Sex: Female

DRUGS (9)
  1. IDARUBICIN HYDROCHLORIDE POWDER, STERILE (IDARUBICIN HYDROCHLORIDE) [Suspect]
     Indication: ACUTE MYELOID LEUKAEMIA
     Dosage: (DAILY INTERVAL: FOR 3 DAYS), INTRAVENOUS
     Route: 042
     Dates: start: 20050715, end: 20050717
  2. CYTARABINE [Suspect]
     Indication: ACUTE MYELOID LEUKAEMIA
     Dosage: (180 MG, DAILY INTERVAL: DAY 1 -DAY 5), INTRAVENOUS
     Route: 042
     Dates: start: 20050715, end: 20050719
  3. ETOPOSIDE [Suspect]
     Indication: ACUTE MYELOID LEUKAEMIA
     Dosage: (DAILY INTERVAL: DAY 1 - DAY 5), INTRAVENOUS
     Route: 042
     Dates: start: 20050715, end: 20050719
  4. FILGRASTIM (FILGRASTIM) [Suspect]
     Indication: ILL-DEFINED DISORDER
     Dosage: 300 MCG (300 MCG, DAILY INTERVAL: DAILY), SUBCUTANEOUS
     Route: 058
     Dates: start: 20050720, end: 20050722
  5. DIFLUCAN [Concomitant]
  6. DEPO-RALOVERA (MEDROXYPROGESTERONE ACETATE) [Concomitant]
  7. ESTRADIOL [Concomitant]
  8. MAXOLON [Concomitant]
  9. ATIVAN [Concomitant]

REACTIONS (3)
  - PYREXIA [None]
  - SYNCOPE [None]
  - VOMITING [None]
